FAERS Safety Report 8456090 (Version 2)
Quarter: 2013Q1

REPORT INFORMATION
  Report Type: Spontaneous
  Country: US (occurrence: US)
  Receive Date: 20120313
  Receipt Date: 20130318
  Transmission Date: 20140127
  Serious: Yes (Other)
  Sender: FDA-Public Use
  Company Number: US-ROCHE-1046217

PATIENT
  Age: 55 None
  Sex: Male
  Weight: 77.18 kg

DRUGS (4)
  1. ACCUTANE [Suspect]
     Indication: PSORIASIS
     Route: 048
     Dates: start: 198301, end: 198309
  2. ACCUTANE [Suspect]
     Route: 048
     Dates: start: 1983
  3. ACCUTANE [Suspect]
     Route: 048
     Dates: start: 1982
  4. METHOTREXATE [Concomitant]

REACTIONS (12)
  - Colitis [Unknown]
  - Inflammatory bowel disease [Unknown]
  - Depression [Unknown]
  - Injury [Unknown]
  - Diverticulitis [Unknown]
  - Hypertension [Unknown]
  - Bronchitis [Unknown]
  - Blood triglycerides increased [Unknown]
  - Blood cholesterol increased [Unknown]
  - Back pain [Unknown]
  - Drug eruption [Unknown]
  - Lip dry [Unknown]
